FAERS Safety Report 9916475 (Version 1)
Quarter: 2014Q1

REPORT INFORMATION
  Report Type: Spontaneous
  Country: FR (occurrence: None)
  Receive Date: 20140219
  Receipt Date: 20140219
  Transmission Date: 20141002
  Serious: Yes (Hospitalization)
  Sender: FDA-Public Use
  Company Number: 2181825

PATIENT
  Age: 27 Day
  Sex: Male
  Weight: 3.38 kg

DRUGS (1)
  1. PAMIDRONIC ACID [Suspect]
     Indication: HYPERCALCAEMIA
     Dosage: 1.7 MG MILLIGRAM(S), 1 DAY, INTRAVENOUS (NOT OTHERWISE SPECIFIED)
     Route: 042
     Dates: start: 20131210, end: 20131210

REACTIONS (1)
  - Generalised erythema [None]
